FAERS Safety Report 13510987 (Version 2)
Quarter: 2017Q2

REPORT INFORMATION
  Report Type: Report from Study
  Country: IL (occurrence: IL)
  Receive Date: 20170503
  Receipt Date: 20170512
  Transmission Date: 20170830
  Serious: Yes (Hospitalization)
  Sender: FDA-Public Use
  Company Number: IL-EMD SERONO-8156015

PATIENT
  Age: 57 Year
  Sex: Male

DRUGS (2)
  1. REBIF [Suspect]
     Active Substance: INTERFERON BETA-1A
     Indication: RELAPSING-REMITTING MULTIPLE SCLEROSIS
     Dosage: 20% TITRATION OF 44 MCG
     Route: 058
     Dates: start: 20170418
  2. REBIF [Suspect]
     Active Substance: INTERFERON BETA-1A
     Dates: start: 20170427

REACTIONS (3)
  - Vomiting [Unknown]
  - Chills [Unknown]
  - Incorrect dose administered [Unknown]

NARRATIVE: CASE EVENT DATE: 20170427
